FAERS Safety Report 9694075 (Version 3)
Quarter: 2013Q4

REPORT INFORMATION
  Report Type: Spontaneous
  Country: GB (occurrence: GB)
  Receive Date: 20131118
  Receipt Date: 20131125
  Transmission Date: 20140711
  Serious: Yes (Hospitalization, Other)
  Sender: FDA-Public Use
  Company Number: GB-ABBVIE-13A-167-1055200-00

PATIENT
  Age: 23 Year
  Sex: Male

DRUGS (9)
  1. SODIUM VALPROATE [Suspect]
     Indication: SCHIZOAFFECTIVE DISORDER
  2. SODIUM VALPROATE [Suspect]
  3. OLANZAPINE [Concomitant]
     Indication: SCHIZOAFFECTIVE DISORDER
  4. CLOPIXOL [Concomitant]
     Indication: SCHIZOAFFECTIVE DISORDER
  5. HALDOLIN [Concomitant]
     Indication: SCHIZOAFFECTIVE DISORDER
  6. QUETIAPINE [Concomitant]
     Indication: SCHIZOAFFECTIVE DISORDER
  7. AMISULPRIDE [Concomitant]
     Indication: SCHIZOAFFECTIVE DISORDER
  8. LITHIUM [Concomitant]
     Indication: SCHIZOAFFECTIVE DISORDER
  9. ARIPIPRAZOLE [Concomitant]
     Indication: PRODUCT USED FOR UNKNOWN INDICATION

REACTIONS (2)
  - Agranulocytosis [Recovered/Resolved]
  - Agranulocytosis [Recovered/Resolved]
